FAERS Safety Report 12725159 (Version 1)
Quarter: 2016Q3

REPORT INFORMATION
  Report Type: Spontaneous
  Country: US (occurrence: US)
  Receive Date: 20160905
  Receipt Date: 20160905
  Transmission Date: 20161109
  Serious: Yes (Disabling)
  Sender: FDA-Public Use
  Company Number: None

PATIENT
  Age: 67 Year
  Sex: Female
  Weight: 46.35 kg

DRUGS (10)
  1. HYDROXYCHLOROQU- INE [Suspect]
     Active Substance: HYDROXYCHLOROQUINE
     Indication: CONNECTIVE TISSUE DISORDER
     Route: 048
     Dates: start: 20070102, end: 20160328
  2. AMLODIPINE BESYLATE GENERIC OF NORVAST [Concomitant]
  3. PRESERVISION AREDS2 [Concomitant]
  4. TRIAMCINOLONE STEROID OINTMENT [Concomitant]
  5. VITAMIN D3 [Concomitant]
     Active Substance: CHOLECALCIFEROL
  6. QUINACRINE [Concomitant]
     Active Substance: QUINACRINE
  7. ACETAMINOPHEN WITH CODEINE (GENERIC OF NORVAST) [Concomitant]
  8. ATORVASTATIN GENERIC OF LIPITOR [Concomitant]
  9. COQ10 [Concomitant]
     Active Substance: UBIDECARENONE
  10. ASPIRIN. [Concomitant]
     Active Substance: ASPIRIN

REACTIONS (2)
  - Retinal toxicity [None]
  - Macular degeneration [None]

NARRATIVE: CASE EVENT DATE: 20160328
